FAERS Safety Report 25029697 (Version 1)
Quarter: 2025Q1

REPORT INFORMATION
  Report Type: Spontaneous
  Country: US (occurrence: US)
  Receive Date: 20250303
  Receipt Date: 20250303
  Transmission Date: 20250408
  Serious: No
  Sender: SANOFI AVENTIS
  Company Number: US-SA-2025SA062043

PATIENT
  Sex: Male

DRUGS (1)
  1. DUPIXENT [Suspect]
     Active Substance: DUPILUMAB
     Indication: Eosinophilic oesophagitis
     Dosage: 300MG QW
     Route: 058
     Dates: start: 202304

REACTIONS (3)
  - Abdominal discomfort [Unknown]
  - Vomiting [Unknown]
  - Eosinophilic oesophagitis [Unknown]

NARRATIVE: CASE EVENT DATE: 20250101
